FAERS Safety Report 10910953 (Version 1)
Quarter: 2015Q1

REPORT INFORMATION
  Report Type: Spontaneous
  Country: US (occurrence: US)
  Receive Date: 20150312
  Receipt Date: 20150312
  Transmission Date: 20150721
  Serious: No
  Sender: FDA-Public Use
  Company Number: US-009507513-1503USA004865

PATIENT
  Age: 76 Year
  Sex: Male

DRUGS (3)
  1. CLARITIN [Suspect]
     Active Substance: LORATADINE
     Indication: DRY EYE
  2. CLARITIN [Suspect]
     Active Substance: LORATADINE
     Indication: NASAL DRYNESS
  3. CLARITIN [Suspect]
     Active Substance: LORATADINE
     Indication: SINUS DISORDER
     Dosage: UNK, UNKNOWN
     Route: 048

REACTIONS (2)
  - Product packaging issue [Unknown]
  - Product use issue [Unknown]
